FAERS Safety Report 13765646 (Version 1)
Quarter: 2017Q3

REPORT INFORMATION
  Report Type: Spontaneous
  Country: PK (occurrence: PK)
  Receive Date: 20170718
  Receipt Date: 20170718
  Transmission Date: 20171127
  Serious: Yes (Other)
  Sender: FDA-Public Use
  Company Number: PK-LUNDBECK-DKLU2034212

PATIENT
  Age: 5 Year
  Sex: Male

DRUGS (1)
  1. FRISIUM [Suspect]
     Active Substance: CLOBAZAM
     Indication: SEIZURE
     Route: 048
     Dates: start: 201703

REACTIONS (3)
  - Drug withdrawal convulsions [Not Recovered/Not Resolved]
  - Irritability [Not Recovered/Not Resolved]
  - Cystic fibrosis [Unknown]
